FAERS Safety Report 21269774 (Version 1)
Quarter: 2022Q3

REPORT INFORMATION
  Report Type: Other
  Country: DK (occurrence: DK)
  Receive Date: 20220830
  Receipt Date: 20220830
  Transmission Date: 20221026
  Serious: Yes (Other)
  Sender: FDA-Public Use
  Company Number: DK-ORESUND-22OPAZA1433P

PATIENT
  Age: 78 Year
  Sex: Female

DRUGS (2)
  1. TARCEVA [Suspect]
     Active Substance: ERLOTINIB HYDROCHLORIDE
     Indication: Product used for unknown indication
     Dosage: UNK, UNKNOWN FREQ.
     Route: 048
  2. ZOLEDRONIC ACID [Suspect]
     Active Substance: ZOLEDRONIC ACID
     Indication: Product used for unknown indication
     Dosage: UNK UNK, UNKNOWN FREQ.
     Route: 065

REACTIONS (18)
  - Exophthalmos [Recovered/Resolved]
  - Optic perineuritis [Recovered/Resolved]
  - Scleritis [Recovered/Resolved]
  - Optic neuritis [Recovered/Resolved]
  - Iridocyclitis [Recovered/Resolved]
  - Ocular hyperaemia [Recovered/Resolved]
  - Influenza [Recovered/Resolved]
  - Lacrimation increased [Recovered/Resolved]
  - Anterior chamber cell [Recovered/Resolved]
  - Hyperaemia [Recovered/Resolved]
  - Parophthalmia [Recovered/Resolved]
  - C-reactive protein increased [Recovered/Resolved]
  - Ocular discomfort [Recovered/Resolved]
  - Conjunctival oedema [Recovered/Resolved]
  - Movement disorder [Recovered/Resolved]
  - Conjunctival hyperaemia [Recovered/Resolved]
  - Eye swelling [Recovered/Resolved]
  - Diplopia [Recovered/Resolved]
